FAERS Safety Report 17774208 (Version 1)
Quarter: 2020Q2

REPORT INFORMATION
  Report Type: Spontaneous
  Country: US (occurrence: US)
  Receive Date: 20200513
  Receipt Date: 20200513
  Transmission Date: 20200714
  Serious: No
  Sender: FDA-Public Use
  Company Number: US-JNJFOC-20200415940

PATIENT
  Age: 80 Year
  Sex: Female

DRUGS (1)
  1. TYLENOL 8 HR ARTHRITIS PAIN [Suspect]
     Active Substance: ACETAMINOPHEN
     Indication: ARTHRALGIA
     Route: 065
     Dates: start: 20200409

REACTIONS (3)
  - Product package associated injury [Unknown]
  - Product packaging issue [Unknown]
  - Product label issue [Unknown]

NARRATIVE: CASE EVENT DATE: 20200409
